FAERS Safety Report 16677175 (Version 1)
Quarter: 2019Q3

REPORT INFORMATION
  Report Type: Spontaneous
  Country: US (occurrence: US)
  Receive Date: 20190807
  Receipt Date: 20190807
  Transmission Date: 20191004
  Serious: No
  Sender: FDA-Public Use
  Company Number: US-DRREDDYS-USA/USA/19/0112727

PATIENT
  Sex: Female
  Weight: 97.6 kg

DRUGS (7)
  1. HABITROL [Suspect]
     Active Substance: NICOTINE
     Indication: TOBACCO USER
     Route: 062
     Dates: start: 201904, end: 201907
  2. LISINOPRIL. [Concomitant]
     Active Substance: LISINOPRIL
     Route: 065
  3. LISINOPRIL. [Concomitant]
     Active Substance: LISINOPRIL
     Indication: HYPERTENSION
     Route: 065
  4. SYNTHROID [Concomitant]
     Active Substance: LEVOTHYROXINE SODIUM
     Indication: THYROID DISORDER
     Route: 065
  5. CLONAZEPAM. [Concomitant]
     Active Substance: CLONAZEPAM
     Route: 065
  6. HABITROL [Suspect]
     Active Substance: NICOTINE
     Route: 062
     Dates: start: 201907, end: 20190731
  7. CLONAZEPAM. [Concomitant]
     Active Substance: CLONAZEPAM
     Indication: ANXIETY
     Route: 065

REACTIONS (8)
  - Pollakiuria [Unknown]
  - Taste disorder [Unknown]
  - Product use issue [Unknown]
  - Agitation [Unknown]
  - Malaise [Unknown]
  - Application site pruritus [Recovered/Resolved]
  - Joint swelling [Unknown]
  - Nervousness [Unknown]
